FAERS Safety Report 10762845 (Version 1)
Quarter: 2015Q1

REPORT INFORMATION
  Report Type: Spontaneous
  Country: US (occurrence: US)
  Receive Date: 20150204
  Receipt Date: 20150204
  Transmission Date: 20150721
  Serious: No
  Sender: FDA-Public Use
  Company Number: US-BRISTOL-MYERS SQUIBB COMPANY-BMS-2015-006526

PATIENT
  Sex: Female

DRUGS (1)
  1. ABILIFY [Suspect]
     Active Substance: ARIPIPRAZOLE
     Indication: PRODUCT USED FOR UNKNOWN INDICATION
     Dosage: DOSAGE WAS INCREASED TO 5 MG, AND THEN UPPED TO 10 MG AND 15 MG AND NOW HER DOSAGE IS 30 MG.
     Route: 065
     Dates: start: 201501

REACTIONS (1)
  - Drug ineffective [Unknown]
